FAERS Safety Report 18446551 (Version 2)
Quarter: 2020Q4

REPORT INFORMATION
  Report Type: Spontaneous
  Country: US (occurrence: US)
  Receive Date: 20201030
  Receipt Date: 20201030
  Transmission Date: 20210114
  Serious: No
  Sender: FDA-Public Use
  Company Number: US-NOVOPROD-703571

PATIENT
  Age: 70 Year
  Sex: Female

DRUGS (2)
  1. TRESIBA [Suspect]
     Active Substance: INSULIN DEGLUDEC
     Indication: DIABETES MELLITUS
     Dosage: UNK
     Route: 058
  2. TRESIBA [Suspect]
     Active Substance: INSULIN DEGLUDEC
     Indication: DIABETES MELLITUS
     Dosage: 60 IU, QD (ADMINISTERED ON STOMACH/THIGHS)
     Route: 058
     Dates: start: 201908

REACTIONS (4)
  - Product dispensing error [Unknown]
  - Injection site swelling [Unknown]
  - Dizziness [Unknown]
  - Injection site discolouration [Unknown]
